FAERS Safety Report 23736658 (Version 1)
Quarter: 2024Q2

REPORT INFORMATION
  Report Type: Spontaneous
  Country: JP (occurrence: JP)
  Receive Date: 20240412
  Receipt Date: 20240412
  Transmission Date: 20240716
  Serious: Yes (Hospitalization, Other)
  Sender: FDA-Public Use
  Company Number: JP-PHATHOM PHARMACEUTICALS INC.-2024PHT00182

PATIENT
  Age: 9 Decade
  Sex: Male

DRUGS (3)
  1. VONOPRAZAN FUMARATE [Suspect]
     Active Substance: VONOPRAZAN FUMARATE
     Indication: Gastric ulcer
     Dosage: 20 MG
     Route: 048
  2. VONOPRAZAN FUMARATE [Suspect]
     Active Substance: VONOPRAZAN FUMARATE
     Dosage: 10 MG
     Route: 048
  3. VONOPRAZAN FUMARATE [Suspect]
     Active Substance: VONOPRAZAN FUMARATE
     Dosage: 20 MG
     Route: 048

REACTIONS (5)
  - Upper gastrointestinal perforation [Recovering/Resolving]
  - Gastric ulcer [Recovering/Resolving]
  - Drug ineffective [Unknown]
  - Underdose [Recovered/Resolved]
  - Incorrect product administration duration [Unknown]
